FAERS Safety Report 6492344-7 (Version None)
Quarter: 2009Q4

REPORT INFORMATION
  Report Type: 
  Country: None (occurrence: None)
  Receive Date: 20091208
  Receipt Date: 20091125
  Transmission Date: 20100525
  Serious: Yes (Congenital Anomaly)
  Sender: FDA-Public Use
  Company Number: ADR52362009

PATIENT
  Sex: Male

DRUGS (4)
  1. LAMOTRIGINE [Suspect]
     Route: 064
  2. TOPIRAMATE [Suspect]
     Dosage: TRANSPLACENTAL
  3. CLOBAZAM (SUSPECT) [Concomitant]
  4. VALPROIC ACID (SUSPECT) [Concomitant]

REACTIONS (3)
  - DRUG INTERACTION [None]
  - HYPOSPADIAS [None]
  - MATERNAL DRUGS AFFECTING FOETUS [None]
